FAERS Safety Report 9993726 (Version 1)
Quarter: 2014Q1

REPORT INFORMATION
  Report Type: Report from Study
  Country: US (occurrence: US)
  Receive Date: 20140310
  Receipt Date: 20140310
  Transmission Date: 20141002
  Serious: Yes (Hospitalization)
  Sender: FDA-Public Use
  Company Number: US-ABBVIE-14P-163-1209181-00

PATIENT
  Age: 48 Year
  Sex: Male
  Weight: 65.83 kg

DRUGS (4)
  1. CREON [Suspect]
     Indication: PANCREATITIS CHRONIC
     Dates: start: 20131115
  2. METOPROLOL [Concomitant]
     Indication: HYPERTENSION
  3. LANTUS [Concomitant]
     Indication: DIABETES MELLITUS
  4. APIDRA [Concomitant]
     Indication: DIABETES MELLITUS

REACTIONS (3)
  - Disorientation [Recovered/Resolved]
  - Blood glucose increased [Recovered/Resolved]
  - Hypertension [Recovered/Resolved]
